FAERS Safety Report 18336581 (Version 1)
Quarter: 2020Q4

REPORT INFORMATION
  Report Type: Spontaneous
  Country: US (occurrence: US)
  Receive Date: 20201001
  Receipt Date: 20201001
  Transmission Date: 20210113
  Serious: No
  Sender: FDA-Public Use
  Company Number: US-TEIKOKU PHARMA USA-TPU2020-00782

PATIENT
  Sex: Female

DRUGS (1)
  1. LIDOCAINE PATCH [Suspect]
     Active Substance: LIDOCAINE
     Indication: PAIN
     Dosage: 3-4 PATCHES PER DAY FOR PAIN, ON HER LEG, AND THE AREA OF LUMBAR STENOSIS.
     Route: 061

REACTIONS (1)
  - Incorrect dose administered [Unknown]
